FAERS Safety Report 5247614-7 (Version None)
Quarter: 2007Q1

REPORT INFORMATION
  Report Type: 
  Country: None (occurrence: None)
  Receive Date: 20070220
  Receipt Date: 20070201
  Transmission Date: 20070707
  Serious: Yes (Hospitalization)
  Sender: FDA-Public Use
  Company Number: 236544

PATIENT
  Age: 80 Year

DRUGS (1)
  1. AVASTIN [Suspect]
     Indication: B-CELL LYMPHOMA
     Dosage: 10 MG/KG, Q2W, INTRAVENOUS
     Route: 042
     Dates: start: 20061004

REACTIONS (5)
  - ARRHYTHMIA SUPRAVENTRICULAR [None]
  - ATRIAL FIBRILLATION [None]
  - CLOSTRIDIUM DIFFICILE COLITIS [None]
  - DISEASE PROGRESSION [None]
  - LUNG INFILTRATION [None]
